FAERS Safety Report 9967197 (Version 2)
Quarter: 2014Q1

REPORT INFORMATION
  Report Type: Report from Study
  Country: US (occurrence: US)
  Receive Date: 20140305
  Receipt Date: 20140305
  Transmission Date: 20141002
  Serious: No
  Sender: FDA-Public Use
  Company Number: US-ABBVIE-13P-163-1085488-00

PATIENT
  Age: 52 Year
  Sex: Female

DRUGS (13)
  1. HUMIRA [Suspect]
     Indication: PSORIATIC ARTHROPATHY
     Dosage: ON TUESDAYS
     Dates: start: 20130515
  2. OPANA [Concomitant]
     Indication: BACK PAIN
  3. OPANA [Concomitant]
     Indication: PSORIATIC ARTHROPATHY
  4. EXALGO [Concomitant]
     Indication: PAIN
  5. ABILIFY [Concomitant]
     Indication: DEPRESSION
  6. CELEXA [Concomitant]
     Indication: DEPRESSION
  7. SINGULAIR [Concomitant]
     Indication: ASTHMA
  8. VITAMIN D [Concomitant]
     Indication: PRODUCT USED FOR UNKNOWN INDICATION
  9. ADVIL [Concomitant]
     Indication: PAIN
  10. VENLAFAXINE [Concomitant]
     Indication: MENOPAUSE
  11. PREDNISONE [Concomitant]
     Indication: PSORIATIC ARTHROPATHY
  12. EXCEDRIN [Concomitant]
     Indication: PAIN
  13. ALEVE [Concomitant]
     Indication: PAIN

REACTIONS (2)
  - Injection site pain [Recovered/Resolved]
  - Injection site bruising [Recovered/Resolved]
